FAERS Safety Report 9447527 (Version 2)
Quarter: 2013Q3

REPORT INFORMATION
  Report Type: Spontaneous
  Country: US (occurrence: US)
  Receive Date: 20130808
  Receipt Date: 20130925
  Transmission Date: 20140515
  Serious: No
  Sender: FDA-Public Use
  Company Number: US-PFIZER INC-2013230209

PATIENT
  Age: 74 Year
  Sex: Male

DRUGS (3)
  1. NEURONTIN [Suspect]
     Indication: NEURALGIA
     Dosage: 2400 MG, 1X/DAY
     Dates: start: 1998
  2. CELEBREX [Suspect]
     Indication: NEURALGIA
     Dosage: 200 MG, 1X/DAY
     Dates: start: 1998
  3. VIAGRA [Suspect]
     Dosage: 100 MG, AS NEEDED
     Dates: start: 2003

REACTIONS (1)
  - Back pain [Unknown]
